FAERS Safety Report 4498070-8 (Version None)
Quarter: 2004Q3

REPORT INFORMATION
  Report Type: 
  Country: None (occurrence: None)
  Receive Date: 20040927
  Receipt Date: 20040726
  Transmission Date: 20050211
  Serious: No
  Sender: FDA-Public Use
  Company Number: USA040773653

PATIENT
  Age: 53 Year
  Sex: Female

DRUGS (13)
  1. STRATTERA [Suspect]
     Indication: ATTENTION DEFICIT/HYPERACTIVITY DISORDER
     Dosage: 40 MG DAY
     Dates: start: 20040721
  2. TYLENOL W/ CODEINE NO. 3 [Concomitant]
  3. CODEINE SULFATE [Concomitant]
  4. NEURONTIN [Concomitant]
  5. SKELAXIN (METALAXONE) [Concomitant]
  6. PREVACID [Concomitant]
  7. METOCLOPRAMIDE [Concomitant]
  8. CARAFATE [Concomitant]
  9. ALLEGRA-D [Concomitant]
  10. DIFLUCAN [Concomitant]
  11. HORMONE REPLACEMENT THERAPY [Concomitant]
  12. VIVACTIL (PROTIRPTYLINE HYDROCHLORIDE) [Concomitant]
  13. TRI-ESTROGEN [Concomitant]

REACTIONS (3)
  - HOT FLUSH [None]
  - POLLAKIURIA [None]
  - SLEEP DISORDER [None]
